FAERS Safety Report 9953292 (Version 2)
Quarter: 2014Q1

REPORT INFORMATION
  Report Type: Spontaneous
  Country: PR (occurrence: PR)
  Receive Date: 20140304
  Receipt Date: 20140304
  Transmission Date: 20141002
  Serious: No
  Sender: FDA-Public Use
  Company Number: PR-ABBVIE-12P-131-1015105-00

PATIENT
  Age: 39 Year
  Sex: Female
  Weight: 76.27 kg

DRUGS (3)
  1. HUMIRA [Suspect]
     Indication: RHEUMATOID ARTHRITIS
     Route: 058
     Dates: start: 201209, end: 201211
  2. HUMIRA [Suspect]
     Route: 058
     Dates: start: 201212, end: 201302
  3. HUMIRA [Suspect]
     Route: 058
     Dates: start: 201303

REACTIONS (3)
  - Sinus congestion [Recovered/Resolved]
  - Sinusitis [Recovered/Resolved]
  - Pharyngitis [Recovered/Resolved]
